FAERS Safety Report 5127471-X (Version None)
Quarter: 2006Q4

REPORT INFORMATION
  Report Type: 
  Country: None (occurrence: None)
  Receive Date: 20061010
  Receipt Date: 20060926
  Transmission Date: 20070319
  Serious: Yes (Other)
  Sender: FDA-Public Use
  Company Number: 2006116669

PATIENT
  Age: 23 Year
  Sex: Female

DRUGS (1)
  1. FLUCONAZOLE [Suspect]
     Dosage: 1 CAPSULE (TOTAL), ORAL
     Route: 048
     Dates: start: 20060901, end: 20060101

REACTIONS (1)
  - HENOCH-SCHONLEIN PURPURA [None]
